FAERS Safety Report 24231413 (Version 1)
Quarter: 2024Q3

REPORT INFORMATION
  Report Type: Spontaneous
  Country: FR (occurrence: None)
  Receive Date: 20240821
  Receipt Date: 20240821
  Transmission Date: 20241016
  Serious: Yes (Other)
  Sender: ASTRAZENECA
  Company Number: 2024A184191

PATIENT
  Age: 44 Year
  Sex: Male
  Weight: 49 kg

DRUGS (3)
  1. EVUSHELD [Suspect]
     Active Substance: CILGAVIMAB\TIXAGEVIMAB
     Indication: COVID-19 prophylaxis
     Dosage: UNKNOWN
     Route: 030
     Dates: start: 20220118, end: 20220118
  2. SOTROVIMAB [Suspect]
     Active Substance: SOTROVIMAB
     Indication: COVID-19 treatment
     Dates: start: 20220203, end: 20220203
  3. COMIRNATY [Concomitant]
     Indication: COVID-19 immunisation
     Dosage: D1+D22.0DF ONCE/SINGLE ADMINISTRATION
     Route: 042
     Dates: start: 202111, end: 20211215

REACTIONS (1)
  - Hepatic cytolysis [Recovering/Resolving]

NARRATIVE: CASE EVENT DATE: 20220210
